FAERS Safety Report 23235534 (Version 2)
Quarter: 2023Q4

REPORT INFORMATION
  Report Type: Report from Study
  Country: CN (occurrence: CN)
  Receive Date: 20231128
  Receipt Date: 20231229
  Transmission Date: 20240110
  Serious: Yes (Hospitalization)
  Sender: FDA-Public Use
  Company Number: CN-PFIZER INC-PV202300190040

PATIENT
  Age: 73 Year
  Sex: Male
  Weight: 67 kg

DRUGS (5)
  1. CYTARABINE [Suspect]
     Active Substance: CYTARABINE
     Indication: Acute myeloid leukaemia
     Dosage: 200 MG, 1X/DAY
     Route: 041
     Dates: start: 20230803, end: 20230809
  2. INVESTIGATIONAL PRODUCT [Suspect]
     Active Substance: INVESTIGATIONAL PRODUCT
     Indication: Acute myeloid leukaemia
     Dosage: UNK
     Dates: start: 20230802, end: 20230802
  3. INVESTIGATIONAL PRODUCT [Suspect]
     Active Substance: INVESTIGATIONAL PRODUCT
     Dosage: UNK
     Dates: start: 20230803, end: 20230811
  4. MITOXANTRONE [Suspect]
     Active Substance: MITOXANTRONE HYDROCHLORIDE
     Indication: Acute myeloid leukaemia
     Dosage: 13.76 MG, QD, 25/12.5 MILLIGRAM PER MILLILITRE
     Route: 041
     Dates: start: 20230803, end: 20230805
  5. ETOPOSIDE [Suspect]
     Active Substance: ETOPOSIDE
     Indication: Acute myeloid leukaemia
     Dosage: 172 MG, QD, 0.1/5 GRAM PER MILLILITRE
     Route: 041
     Dates: start: 20230803, end: 20230805

REACTIONS (1)
  - Cardiac failure acute [Recovered/Resolved]

NARRATIVE: CASE EVENT DATE: 20230819
